FAERS Safety Report 26180893 (Version 1)
Quarter: 2025Q4

REPORT INFORMATION
  Report Type: Spontaneous
  Country: CN (occurrence: CN)
  Receive Date: 20251221
  Receipt Date: 20251221
  Transmission Date: 20260118
  Serious: Yes (Hospitalization)
  Sender: COHERUS
  Company Number: CN-SHANGHAI JUNSHI BIOSCIENCES CO., LTD.-CN2025016868

PATIENT

DRUGS (4)
  1. TORIPALIMAB [Suspect]
     Active Substance: TORIPALIMAB
     Indication: Renal cancer
     Dosage: 240 MG, SINGLE
     Route: 041
     Dates: start: 20251110, end: 20251110
  2. TORIPALIMAB [Suspect]
     Active Substance: TORIPALIMAB
     Indication: Metastases to liver
  3. AXITINIB [Concomitant]
     Active Substance: AXITINIB
     Indication: Renal cancer
     Dosage: 1 TABLET, BID
     Route: 048
     Dates: start: 20251101, end: 20251101
  4. AXITINIB [Concomitant]
     Active Substance: AXITINIB
     Indication: Metastases to liver

REACTIONS (7)
  - Yellow skin [Recovered/Resolved]
  - Ocular icterus [Recovered/Resolved]
  - Bilirubin conjugated increased [Recovered/Resolved]
  - Blood bilirubin unconjugated increased [Recovered/Resolved]
  - Blood bilirubin increased [Recovered/Resolved]
  - Decreased appetite [Recovered/Resolved]
  - Asthenia [Recovered/Resolved]

NARRATIVE: CASE EVENT DATE: 20251115
